FAERS Safety Report 7489169-2 (Version None)
Quarter: 2011Q2

REPORT INFORMATION
  Report Type: 
  Country: None (occurrence: None)
  Receive Date: 20110518
  Receipt Date: 20110503
  Transmission Date: 20111010
  Serious: Yes (Hospitalization)
  Sender: FDA-Public Use
  Company Number: ES-BAYER-2011-037403

PATIENT
  Age: 73 Year
  Sex: Male

DRUGS (6)
  1. AMLODIPINE [Concomitant]
     Indication: HYPERTENSION
     Dosage: 5 MG, HS
     Route: 048
     Dates: start: 20100801
  2. IRBESARTAN + HYDROCHLOROTHIAZIDE [Concomitant]
     Indication: HYPERTENSION
     Dosage: 1 DF, HS
     Route: 048
     Dates: start: 20100801
  3. ASPIRIN [Interacting]
     Indication: PROPHYLAXIS
     Dosage: 100 MG, HS
     Route: 048
     Dates: start: 20100801, end: 20110114
  4. NAPROXEN (ALEVE) [Suspect]
     Indication: ARTHRALGIA
     Dosage: 0.5 G, BID
     Route: 048
     Dates: start: 20101230, end: 20110114
  5. OMEPRAZOLE [Concomitant]
     Indication: PROPHYLAXIS
     Dosage: 20 MG, HS
     Route: 048
     Dates: start: 20100801
  6. DICLOFENAC SODIUM [Interacting]
     Indication: ARTHRALGIA
     Dosage: 50 MG, BID
     Route: 048
     Dates: start: 20101230, end: 20110114

REACTIONS (1)
  - UPPER GASTROINTESTINAL HAEMORRHAGE [None]
